FAERS Safety Report 18111191 (Version 4)
Quarter: 2020Q4

REPORT INFORMATION
  Report Type: Spontaneous
  Country: DE (occurrence: DE)
  Receive Date: 20200804
  Receipt Date: 20201028
  Transmission Date: 20210113
  Serious: Yes (Hospitalization, Other)
  Sender: FDA-Public Use
  Company Number: NVSC2020DE216951

PATIENT
  Age: 25 Year
  Sex: Female

DRUGS (17)
  1. NIFEDIPINE. [Suspect]
     Active Substance: NIFEDIPINE
     Indication: GESTATIONAL HYPERTENSION
     Dosage: 10 MG, QD (5 MG BID AT DISCHARGE)
     Route: 048
  2. METOPROLOL. [Suspect]
     Active Substance: METOPROLOL
     Indication: HYPERTENSION
  3. METHYLDOPA. [Suspect]
     Active Substance: METHYLDOPA
     Indication: GESTATIONAL HYPERTENSION
     Dosage: 2000 MG, QD (500 MG, QID)
     Route: 048
     Dates: start: 20180501
  4. METYRAPONE [Concomitant]
     Active Substance: METYRAPONE
     Indication: CUSHING^S SYNDROME
     Dosage: 2.5 G, QD
     Route: 065
  5. NIFEDIPINE. [Suspect]
     Active Substance: NIFEDIPINE
     Indication: HYPERTENSION
     Dosage: 40 MG, QD 20 MG TWO TIMES DAILY (BID)
     Route: 048
  6. METOPROLOL. [Suspect]
     Active Substance: METOPROLOL
     Indication: GESTATIONAL HYPERTENSION
     Dosage: 190 MG, QD (95 MG TWO TIMES DAILY (BID))
     Route: 048
     Dates: start: 20180501, end: 20180604
  7. URAPIDIL [Suspect]
     Active Substance: URAPIDIL
     Indication: HYPOMAGNESAEMIA
     Dosage: UNK
     Route: 042
  8. SPIRONOLACTONE. [Suspect]
     Active Substance: SPIRONOLACTONE
     Indication: PRIMARY HYPERALDOSTERONISM
     Dosage: 200 MG, QD (100 MG BID AT 25 0/7 WEEKS)
     Route: 065
  9. HYDROCHLOROTHIAZIDE. [Suspect]
     Active Substance: HYDROCHLOROTHIAZIDE
     Indication: GESTATIONAL HYPERTENSION
     Dosage: 25 MG, QD (12.5 MG BID)
     Route: 048
  10. HYDRALAZINE [Suspect]
     Active Substance: HYDRALAZINE HYDROCHLORIDE
     Indication: HYPERTENSION
  11. SPIRONOLACTONE. [Suspect]
     Active Substance: SPIRONOLACTONE
     Indication: CUSHING^S SYNDROME
  12. HYDRALAZINE [Suspect]
     Active Substance: HYDRALAZINE HYDROCHLORIDE
     Indication: HYPOMAGNESAEMIA
     Dosage: UNK
     Route: 042
  13. URAPIDIL [Suspect]
     Active Substance: URAPIDIL
     Indication: GESTATIONAL HYPERTENSION
     Dosage: UNK
     Route: 042
     Dates: start: 20180503, end: 20200521
  14. DIHYDRALAZINE [Suspect]
     Active Substance: DIHYDRALAZINE
     Indication: PRODUCT USED FOR UNKNOWN INDICATION
     Dosage: 25 MG, TID
     Route: 042
     Dates: start: 20180501, end: 20180521
  15. HYDROCHLOROTHIAZIDE. [Suspect]
     Active Substance: HYDROCHLOROTHIAZIDE
     Indication: HYPERTENSION
  16. HYDRALAZINE [Suspect]
     Active Substance: HYDRALAZINE HYDROCHLORIDE
     Indication: GESTATIONAL HYPERTENSION
     Dosage: 75 MG, QD (25 MILLIGRAMS (MG) THREE TIMES DAILY (TID) ON ADMISSION)
     Route: 048
  17. METHYLDOPA. [Suspect]
     Active Substance: METHYLDOPA
     Indication: HYPERTENSION

REACTIONS (16)
  - Alanine aminotransferase increased [Recovered/Resolved]
  - Maternal exposure during pregnancy [Unknown]
  - Hyperplasia adrenal [Recovered/Resolved]
  - Haptoglobin decreased [Recovered/Resolved]
  - Blood aldosterone increased [Recovered/Resolved]
  - Platelet count decreased [Recovered/Resolved]
  - Premature delivery [Unknown]
  - Hypomagnesaemia [Recovered/Resolved]
  - Blood corticotrophin decreased [Recovered/Resolved]
  - Exposure during pregnancy [Unknown]
  - Cortisol increased [Recovered/Resolved]
  - Aspartate aminotransferase increased [Recovered/Resolved]
  - Cortisol free urine increased [Recovered/Resolved]
  - Abnormal weight gain [Recovered/Resolved]
  - Pre-eclampsia [Recovered/Resolved]
  - Drug ineffective [Unknown]
